FAERS Safety Report 25841292 (Version 1)
Quarter: 2025Q3

REPORT INFORMATION
  Report Type: Spontaneous
  Country: EU (occurrence: EU)
  Receive Date: 20250924
  Receipt Date: 20250924
  Transmission Date: 20251021
  Serious: Yes (Other)
  Sender: PFIZER
  Company Number: EU-PFIZER INC-202500187030

PATIENT
  Age: 48 Year
  Sex: Male

DRUGS (3)
  1. DOSTINEX [Suspect]
     Active Substance: CABERGOLINE
     Indication: Prolactin-producing pituitary tumour
     Dates: start: 202405
  2. DOSTINEX [Suspect]
     Active Substance: CABERGOLINE
  3. DOSTINEX [Suspect]
     Active Substance: CABERGOLINE
     Dates: start: 2025

REACTIONS (1)
  - Arrhythmia [Unknown]
